FAERS Safety Report 5814726-6 (Version None)
Quarter: 2008Q3

REPORT INFORMATION
  Report Type: 
  Country: None (occurrence: None)
  Receive Date: 20080718
  Receipt Date: 20080311
  Transmission Date: 20090109
  Serious: No
  Sender: FDA-Public Use
  Company Number: US-KINGPHARMUSA00001-K200700011

PATIENT

DRUGS (3)
  1. LEVOXYL [Suspect]
     Indication: HYPOTHYROIDISM
     Dosage: 150 MCG, QD
     Route: 048
  2. LEVOXYL [Suspect]
     Dosage: 150 MCG, QD
  3. LEVOXYL [Suspect]
     Dosage: 3 TO 3.5 50 MCG TABLETS, QD
     Route: 048

REACTIONS (17)
  - ALOPECIA [None]
  - ASTHENIA [None]
  - CHOKING SENSATION [None]
  - CYANOSIS [None]
  - DYSPHONIA [None]
  - FEELING ABNORMAL [None]
  - FEELING COLD [None]
  - GAIT DISTURBANCE [None]
  - GASTROINTESTINAL DISORDER [None]
  - HYPOTHYROIDISM [None]
  - MUSCULOSKELETAL DISCOMFORT [None]
  - OEDEMA PERIPHERAL [None]
  - PALPITATIONS [None]
  - SENSATION OF FOREIGN BODY [None]
  - SWELLING FACE [None]
  - THROAT IRRITATION [None]
  - WEIGHT INCREASED [None]
